FAERS Safety Report 7475775-8 (Version None)
Quarter: 2011Q2

REPORT INFORMATION
  Report Type: 
  Country: None (occurrence: None)
  Receive Date: 20110505
  Receipt Date: 20110420
  Transmission Date: 20111010
  Serious: Yes (Other)
  Sender: FDA-Public Use
  Company Number: DKLU1070002

PATIENT

DRUGS (8)
  1. DOXORUBICIN (DOXORUBICIN) (INJECTION) [Suspect]
     Indication: HODGKIN'S DISEASE
     Dosage: 25 MG/M2 MILLIGRAM(S)/SQ. METER, DAY 1 AND 15, EVERY 28 DAYS, INTRAVENOUS (NOT OTHERWISE SPECIFIED)
     Route: 042
  2. MUSTARGEN [Suspect]
     Indication: HODGKIN'S DISEASE
     Dosage: 6 MG/M2 MILLIGRAM(S)/SQ.METER, DAY 1-8, INTRAVENOUS (NOT OTHERWISE SPECIFIED)
     Route: 042
  3. DACARBAZINE [Suspect]
     Indication: HODGKIN'S DISEASE
     Dosage: 0.375MG/M2 MILLIGRAMS/SQ.METER, DAY 1 AND 15, EVERY 28 DAYS, INTRAVENOUS (NOT OTHERWISE SPECIFIED)
     Route: 042
  4. VINBLASTINE (VINBLASTINE) (INJECTION) [Suspect]
     Indication: HODGKIN'S DISEASE
     Dosage: 6 MG/M2 MILLIGRAM(S)/SQ. METER, DAY 1 AND 15 EVERY 28 DAYS, INTRAVENOUS (NOT OTHERWISE SPECIFIED)
     Route: 042
  5. BLEOMYCIN SULFATE [Suspect]
     Indication: HODGKIN'S DISEASE
     Dosage: 10 MG/M2 MILLIGRAM(S)/SQ. METER, DAY 1 AND 15, EVERY 28 DAYS, INTRAVENOUS (NOT OTHERWISE SPECIFIED)
     Route: 042
  6. PROCARBAZINE HYDROCHLORIDE [Suspect]
     Indication: HODGKIN'S DISEASE
     Dosage: 40 MG/M2 MILLIGRAMS(S)/SQ. METER, DAY 1-14, ORAL
     Route: 048
  7. PREDNISONE [Suspect]
     Indication: HODGKIN'S DISEASE
     Dosage: 40 MG/M2 MILLIGRAMS(S)/SQ. METER, DAY 1-14, ORAL
     Route: 048
  8. VINCRISTINE [Suspect]
     Indication: HODGKIN'S DISEASE
     Dosage: 1.4 MG/M2 MILLIGRAM(S)/SQ. METER, DAY 1-8, INTRAVENOUS (NOT OTHERWISE SPECIFIED)
     Route: 042

REACTIONS (1)
  - PULMONARY TOXICITY [None]
